FAERS Safety Report 12526696 (Version 1)
Quarter: 2016Q3

REPORT INFORMATION
  Report Type: Other
  Country: FR (occurrence: FR)
  Receive Date: 20160705
  Receipt Date: 20160705
  Transmission Date: 20161109
  Serious: Yes (Hospitalization, Other)
  Sender: FDA-Public Use
  Company Number: FR-ASTELLAS-2016US025156

PATIENT
  Age: 88 Year
  Sex: Female

DRUGS (12)
  1. VESICARE [Suspect]
     Active Substance: SOLIFENACIN SUCCINATE
     Indication: DYSURIA
     Route: 048
     Dates: start: 20151018, end: 20151020
  2. DOLIPRANE [Concomitant]
     Active Substance: ACETAMINOPHEN
     Indication: PAIN
     Route: 048
  3. PROCTOLOG                          /01026901/ [Concomitant]
     Indication: PRODUCT USED FOR UNKNOWN INDICATION
     Route: 054
  4. LERCAPRESS [Concomitant]
     Active Substance: ENALAPRIL MALEATE\LERCANIDIPINE HYDROCHLORIDE
     Indication: PRODUCT USED FOR UNKNOWN INDICATION
     Route: 048
  5. DIOVENOR [Concomitant]
     Active Substance: DIOSMIN
     Indication: PRODUCT USED FOR UNKNOWN INDICATION
     Route: 048
  6. VOLTAREN [Concomitant]
     Active Substance: DICLOFENAC SODIUM
     Indication: PRODUCT USED FOR UNKNOWN INDICATION
     Dosage: 1 DF, THRICE DAILY (CUT)
     Route: 065
  7. BACTRIM [Suspect]
     Active Substance: SULFAMETHOXAZOLE\TRIMETHOPRIM
     Indication: DYSURIA
     Dosage: 2 DF, ONCE DAILY (MORNING AND NIGHT DOSES)
     Route: 048
     Dates: start: 20151018, end: 20151020
  8. TAHOR [Concomitant]
     Active Substance: ATORVASTATIN CALCIUM
     Indication: PRODUCT USED FOR UNKNOWN INDICATION
     Route: 048
  9. SPASFON LYOC [Concomitant]
     Active Substance: PHLOROGLUCINOL
     Indication: PAIN
     Dosage: 1 TO 6 LYOCS, ONCE DAILY
     Route: 048
  10. MOVICOL [Concomitant]
     Active Substance: POLYETHYLENE GLYCOL 3350\POTASSIUM CHLORIDE\SODIUM BICARBONATE\SODIUM CHLORIDE
     Indication: PRODUCT USED FOR UNKNOWN INDICATION
     Dosage: 1 DF, ONCE DAILY (1 SACHET/DAY)
     Route: 048
  11. MODURETIC 5-50 [Concomitant]
     Active Substance: AMILORIDE HYDROCHLORIDE\HYDROCHLOROTHIAZIDE
     Indication: PRODUCT USED FOR UNKNOWN INDICATION
     Dosage: 1 DF, ONCE DAILY (5/50)
     Route: 048
  12. NUREFLEX [Concomitant]
     Active Substance: IBUPROFEN
     Indication: PAIN
     Route: 048

REACTIONS (12)
  - Decreased appetite [Unknown]
  - Atrioventricular block first degree [Unknown]
  - Drug dose omission [Unknown]
  - Hypokalaemia [Unknown]
  - Malaise [Unknown]
  - Vomiting [Recovered/Resolved]
  - Nausea [Unknown]
  - Hyponatraemia [Recovered/Resolved]
  - Diarrhoea [Recovered/Resolved]
  - Erythrosis [Unknown]
  - Loss of consciousness [Unknown]
  - Asthenia [Unknown]

NARRATIVE: CASE EVENT DATE: 20151018
